FAERS Safety Report 8330548-9 (Version None)
Quarter: 2012Q2

REPORT INFORMATION
  Report Type: 
  Country: None (occurrence: None)
  Receive Date: 20120502
  Receipt Date: 20120423
  Transmission Date: 20120825
  Serious: Yes (Other)
  Sender: FDA-Public Use
  Company Number: US-BAYER-2012-040242

PATIENT
  Age: 51 Year
  Sex: Female

DRUGS (1)
  1. ASPIRIN [Suspect]
     Dosage: 2 U, PRN
     Route: 048

REACTIONS (4)
  - OEDEMA PERIPHERAL [None]
  - HYPERSENSITIVITY [None]
  - SWELLING FACE [None]
  - DYSPNOEA [None]
